FAERS Safety Report 11888178 (Version 2)
Quarter: 2017Q1

REPORT INFORMATION
  Report Type: Spontaneous
  Country: TR (occurrence: TR)
  Receive Date: 20160105
  Receipt Date: 20170316
  Transmission Date: 20170428
  Serious: Yes (Other)
  Sender: FDA-Public Use
  Company Number: TR-SUN PHARMACEUTICAL INDUSTRIES LTD-2015R1-108850

PATIENT
  Age: 35 Year
  Sex: Male

DRUGS (1)
  1. DEXAMETAZON [Suspect]
     Active Substance: DEXAMETHASONE
     Indication: PULMONARY ALVEOLAR HAEMORRHAGE
     Dosage: 10 MG, BID
     Route: 065

REACTIONS (2)
  - Atelectasis [Recovering/Resolving]
  - Aspergillus infection [Recovering/Resolving]
